FAERS Safety Report 7351966-1 (Version None)
Quarter: 2011Q1

REPORT INFORMATION
  Report Type: 
  Country: None (occurrence: None)
  Receive Date: 20110315
  Receipt Date: 20110308
  Transmission Date: 20110831
  Serious: No
  Sender: FDA-Public Use
  Company Number: US-PFIZER INC-US-WYE-H11961609

PATIENT
  Sex: Male
  Weight: 78 kg

DRUGS (6)
  1. EFFEXOR XR [Suspect]
     Indication: ANXIETY
     Dosage: ^75-125 MG DAILY^
     Route: 048
     Dates: start: 20080901, end: 20081101
  2. EFFEXOR XR [Suspect]
     Dosage: 75 MG, 1X/DAY
     Route: 065
  3. EFFEXOR XR [Suspect]
     Dosage: 150 MG, 1X/DAY
     Route: 065
  4. ATIVAN [Concomitant]
  5. EFFEXOR XR [Suspect]
     Indication: DEPRESSION
     Dosage: 37.5 MG, 1X/DAY
     Route: 065
  6. EFFEXOR XR [Suspect]
     Dosage: 75 MG, 1X/DAY
     Route: 065

REACTIONS (3)
  - UNEVALUABLE EVENT [None]
  - DRUG INEFFECTIVE [None]
  - RESTLESSNESS [None]
